FAERS Safety Report 8322783-0 (Version None)
Quarter: 2012Q2

REPORT INFORMATION
  Report Type: 
  Country: None (occurrence: None)
  Receive Date: 20120426
  Receipt Date: 20120424
  Transmission Date: 20120825
  Serious: Yes (Other)
  Sender: FDA-Public Use
  Company Number: ADR-2011-11683

PATIENT
  Age: 10 Year
  Sex: Male

DRUGS (2)
  1. LIORESAL [Suspect]
     Indication: MUSCLE SPASTICITY
     Dosage: 130 MCG/DAY, INTRATH.
     Route: 037
  2. LIORESAL [Suspect]
     Indication: CEREBRAL PALSY
     Dosage: 130 MCG/DAY, INTRATH.
     Route: 037

REACTIONS (4)
  - IMPLANT SITE EROSION [None]
  - WOUND INFECTION [None]
  - WOUND SECRETION [None]
  - IMPLANT SITE DISCHARGE [None]
